FAERS Safety Report 7790383-7 (Version None)
Quarter: 2011Q3

REPORT INFORMATION
  Report Type: 
  Country: None (occurrence: None)
  Receive Date: 20110930
  Receipt Date: 20110927
  Transmission Date: 20111222
  Serious: Yes (Other)
  Sender: FDA-Public Use
  Company Number: CHPA2011US12210

PATIENT
  Age: 68 Year

DRUGS (1)
  1. THERAFLU UNKNOWN [Suspect]
     Dosage: UNK, UNK
     Route: 048

REACTIONS (4)
  - MALAISE [None]
  - IMPAIRED WORK ABILITY [None]
  - PAIN IN EXTREMITY [None]
  - NODULE [None]
